FAERS Safety Report 10020170 (Version 2)
Quarter: 2014Q2

REPORT INFORMATION
  Report Type: Spontaneous
  Country: US (occurrence: US)
  Receive Date: 20140319
  Receipt Date: 20140401
  Transmission Date: 20141212
  Serious: Yes (Hospitalization)
  Sender: FDA-Public Use
  Company Number: US-BIOGENIDEC-2014BI024351

PATIENT
  Age: 75 Year
  Sex: Female

DRUGS (1)
  1. AVONEX [Suspect]
     Indication: MULTIPLE SCLEROSIS
     Route: 030
     Dates: start: 20010913

REACTIONS (4)
  - Bladder operation [Recovered/Resolved]
  - Hypoaesthesia [Not Recovered/Not Resolved]
  - Nosocomial infection [Recovered/Resolved]
  - Diarrhoea [Unknown]
